FAERS Safety Report 21316114 (Version 2)
Quarter: 2022Q4

REPORT INFORMATION
  Report Type: Spontaneous
  Country: US (occurrence: US)
  Receive Date: 20220910
  Receipt Date: 20221007
  Transmission Date: 20230113
  Serious: Yes (Hospitalization, Disabling, Other)
  Sender: FDA-Public Use
  Company Number: US-009507513-2209USA002206

PATIENT
  Age: 57 Year
  Sex: Female

DRUGS (20)
  1. KEYTRUDA [Suspect]
     Active Substance: PEMBROLIZUMAB
     Indication: Endometrial cancer metastatic
     Dosage: 200 MILLIGRAM, Q3W
     Route: 042
     Dates: start: 202009, end: 20220728
  2. ADVAIR HFA [Concomitant]
     Active Substance: FLUTICASONE PROPIONATE\SALMETEROL XINAFOATE
     Dosage: INHALE 1 PUFF BY MOUTH, 2 TIMES A DAY.
  3. ALBUTEROL SULFATE [Concomitant]
     Active Substance: ALBUTEROL SULFATE
     Dosage: INHALE VIA NEBULIZER 1 VIAL EVERY 6 HOUR AS NEEDE FOR WHEEZING.
  4. ADDERALL [Concomitant]
     Active Substance: AMPHETAMINE ASPARTATE\AMPHETAMINE SULFATE\DEXTROAMPHETAMINE SACCHARATE\DEXTROAMPHETAMINE SULFATE
     Dosage: TAKE BY MOUTH 20 MG IN THE MORNING AND 20 MG AT NOON AND 20 MG BEFORE BEDTIME.
     Route: 048
  5. WELLBUTRIN XL [Concomitant]
     Active Substance: BUPROPION HYDROCHLORIDE
     Dosage: 300 MILLIGRAM, QD
     Route: 048
  6. KLONOPIN [Concomitant]
     Active Substance: CLONAZEPAM
     Dosage: TAKE BY MOUTH 1 MG 4 TIMES A DAY. UP TO 4 X A DAY
     Route: 048
  7. FENTANYL [Concomitant]
     Active Substance: FENTANYL
     Indication: Breakthrough pain
     Dosage: PLACE TOPICALLY ON THE SKIN 2 PATCHES EVERY OTHER DAY.
     Route: 061
  8. NEURONTIN [Concomitant]
     Active Substance: GABAPENTIN
     Dosage: TAKE BY MOUTH 1 TABLET IN THE MORNING AND 1 TABLET AT NOON AND 1 TABLET BEFORE BEDTIME.
     Route: 048
  9. GEODON [Concomitant]
     Active Substance: ZIPRASIDONE HYDROCHLORIDE\ZIPRASIDONE MESYLATE
     Dosage: TAKE 160 MG BY MOUTH EVERY EVENING.
     Route: 048
  10. LAMOTIGIN [Concomitant]
     Dosage: TAKE BY MOUTH 400 MG BEFORE BEDTIME.
     Route: 048
  11. LORATADINE D [Concomitant]
     Active Substance: LORATADINE\PSEUDOEPHEDRINE SULFATE
     Dosage: AKE BY MOUTH 1 TABLET DAILY.
     Route: 048
  12. ONDANSETRON [Concomitant]
     Active Substance: ONDANSETRON
     Indication: Nausea
     Dosage: TAKE BY MOUTH 1 TABLET EVERY 8 HOURS AS NEEDED.
  13. OXYCODONE [Concomitant]
     Active Substance: OXYCODONE
     Indication: Breakthrough pain
     Dosage: 3 DOSAGE FORM, Q4H
     Route: 048
  14. OMEPRAZOLE [Concomitant]
     Active Substance: OMEPRAZOLE
     Dosage: TAKE BY MOUTH 40 MG 2 TIMES A DAY.
     Route: 048
  15. SUMATRIPTAN [Concomitant]
     Active Substance: SUMATRIPTAN
     Dosage: TAKE BY MOUTH 100 MG EVERY 2 HOURS AS NEEDED.
     Route: 048
  16. SENNA+ [Concomitant]
     Dosage: TAKE 2 TABS BY MOUTH 2 TIMES A DAY.
     Route: 048
  17. HEPARIN LOCK FLUSH [Concomitant]
     Active Substance: HEPARIN SODIUM
     Dosage: 6 MILLILITER, QD
  18. SODIUM CHLORIDE [Concomitant]
     Active Substance: SODIUM CHLORIDE
     Dosage: 10 MILLILITER
  19. PROCHLORPERAZINE MALEATE [Concomitant]
     Active Substance: PROCHLORPERAZINE MALEATE
     Dosage: 1 TABLET, QID
     Route: 048
  20. IMITREX [Concomitant]
     Active Substance: SUMATRIPTAN SUCCINATE
     Dosage: UNK, QD
     Route: 048

REACTIONS (46)
  - Pneumatosis intestinalis [Recovered/Resolved]
  - Leukocytosis [Unknown]
  - Lactic acidosis [Unknown]
  - Portal hypertension [Unknown]
  - Portal vein dilatation [Unknown]
  - Gallbladder enlargement [Unknown]
  - Biliary dilatation [Unknown]
  - Pneumonia viral [Unknown]
  - Pancreatic duct dilatation [Unknown]
  - Opportunistic infection [Unknown]
  - Haematochezia [Unknown]
  - Malignant neoplasm progression [Unknown]
  - Interstitial lung disease [Unknown]
  - Haematuria [Unknown]
  - Sinusitis [Unknown]
  - Dysphagia [Unknown]
  - Varices oesophageal [Unknown]
  - Goitre [Unknown]
  - Intervertebral disc degeneration [Unknown]
  - Osteoarthritis [Unknown]
  - Blood urea abnormal [Unknown]
  - Platelet count increased [Unknown]
  - Red cell distribution width increased [Unknown]
  - Fall [Unknown]
  - Heart rate increased [Unknown]
  - Tearfulness [Unknown]
  - Feeling abnormal [Unknown]
  - Renal cyst [Unknown]
  - Surgery [Unknown]
  - Body temperature decreased [Unknown]
  - Vaginal haemorrhage [Unknown]
  - Cancer pain [Unknown]
  - Blood glucose increased [Unknown]
  - Monocyte count increased [Unknown]
  - Lymphocyte count increased [Unknown]
  - Eosinophil count increased [Unknown]
  - Iron deficiency anaemia [Unknown]
  - Aspartate aminotransferase increased [Unknown]
  - Blood alkaline phosphatase increased [Unknown]
  - Vomiting [Unknown]
  - Diarrhoea [Unknown]
  - Pyrexia [Unknown]
  - Cough [Unknown]
  - Nausea [Unknown]
  - Dyspnoea [Unknown]
  - Fatigue [Unknown]

NARRATIVE: CASE EVENT DATE: 20210113
